FAERS Safety Report 7067562-X (Version None)
Quarter: 2010Q4

REPORT INFORMATION
  Report Type: 
  Country: None (occurrence: None)
  Receive Date: 20101020
  Receipt Date: 20101014
  Transmission Date: 20110411
  Serious: Yes (Death)
  Sender: FDA-Public Use
  Company Number: 2010US004312

PATIENT
  Age: 33 Year
  Sex: Female

DRUGS (5)
  1. PROGRAF [Suspect]
     Indication: RENAL TRANSPLANT
     Dosage: 3 MG, BID, ORAL
     Route: 048
  2. LABETALOL HCL [Concomitant]
  3. CIDOFOVIR [Concomitant]
  4. PROCRIT [Concomitant]
  5. BACTRIM (TRIMETHOPRIM) TABLET [Concomitant]

REACTIONS (1)
  - DEATH [None]
